FAERS Safety Report 5605456-4 (Version None)
Quarter: 2008Q1

REPORT INFORMATION
  Report Type: 
  Country: None (occurrence: None)
  Receive Date: 20080124
  Receipt Date: 20080110
  Transmission Date: 20080703
  Serious: Yes (Death, Hospitalization)
  Sender: FDA-Public Use
  Company Number: 02100-JPN-06-0176

PATIENT
  Age: 82 Year
  Sex: Female

DRUGS (8)
  1. CILOSTAZOL [Suspect]
     Indication: CEREBRAL INFARCTION
     Dosage: ONE OF 200 MG OR 75 MG
     Route: 048
     Dates: start: 20060123, end: 20060421
  2. ASPIRIN [Concomitant]
  3. CILNIDIPINE [Concomitant]
  4. ACECLOFENAC [Concomitant]
  5. ATORVASTATIN CALCIUM [Concomitant]
  6. ASPIRIN [Concomitant]
  7. CILOSTAZOL [Concomitant]
  8. IRBESARTAN - HYDROCHLOROTHIAZIDE [Concomitant]

REACTIONS (6)
  - ACUTE MYOCARDIAL INFARCTION [None]
  - CARDIAC ARREST [None]
  - CEREBRAL INFARCTION [None]
  - DISEASE RECURRENCE [None]
  - HEMIPARESIS [None]
  - ISCHAEMIC STROKE [None]
